FAERS Safety Report 8420141-1 (Version None)
Quarter: 2012Q2

REPORT INFORMATION
  Report Type: 
  Country: None (occurrence: None)
  Receive Date: 20120607
  Receipt Date: 20120525
  Transmission Date: 20120825
  Serious: No
  Sender: FDA-Public Use
  Company Number: US-ASTRAZENECA-2012SE34169

PATIENT
  Sex: Female

DRUGS (2)
  1. WARFARIN SODIUM [Interacting]
     Route: 065
  2. NEXIUM [Suspect]
     Route: 048

REACTIONS (1)
  - DRUG INTERACTION [None]
